FAERS Safety Report 20691317 (Version 1)
Quarter: 2022Q2

REPORT INFORMATION
  Report Type: Spontaneous
  Country: US (occurrence: US)
  Receive Date: 20220408
  Receipt Date: 20220408
  Transmission Date: 20220721
  Serious: No
  Sender: FDA-Public Use
  Company Number: US-PFIZER INC-2021727254

PATIENT
  Sex: Female

DRUGS (1)
  1. TRIMETHOBENZAMIDE HYDROCHLORIDE [Suspect]
     Active Substance: TRIMETHOBENZAMIDE HYDROCHLORIDE
     Dosage: UNK

REACTIONS (1)
  - Illness [Unknown]
